FAERS Safety Report 7031570-5 (Version None)
Quarter: 2010Q4

REPORT INFORMATION
  Report Type: 
  Country: None (occurrence: None)
  Receive Date: 20101006
  Receipt Date: 20101006
  Transmission Date: 20110411
  Serious: Yes (Other)
  Sender: FDA-Public Use
  Company Number: None

PATIENT
  Age: 46 Year
  Sex: Male
  Weight: 86.1834 kg

DRUGS (1)
  1. SANCTURA XR [Suspect]
     Indication: HYPERTONIC BLADDER
     Dosage: #30 1 EVERY MORNING PO
     Route: 048
     Dates: start: 20100924, end: 20101002

REACTIONS (3)
  - DRY MOUTH [None]
  - DYSURIA [None]
  - PRURITUS [None]
